FAERS Safety Report 7326705-0 (Version None)
Quarter: 2011Q1

REPORT INFORMATION
  Report Type: 
  Country: None (occurrence: None)
  Receive Date: 20110302
  Receipt Date: 20090818
  Transmission Date: 20110831
  Serious: No
  Sender: FDA-Public Use
  Company Number: US-PFIZER INC-2009257195

PATIENT

DRUGS (1)
  1. VFEND [Suspect]
     Dosage: UNIT DOSE: UNKNOWN;
     Route: 042

REACTIONS (3)
  - CONFUSIONAL STATE [None]
  - RENAL IMPAIRMENT [None]
  - INCORRECT DOSE ADMINISTERED [None]
